FAERS Safety Report 4860792-4 (Version None)
Quarter: 2005Q4

REPORT INFORMATION
  Report Type: 
  Country: None (occurrence: None)
  Receive Date: 20051216
  Receipt Date: 20051216
  Transmission Date: 20060501
  Serious: Yes (Hospitalization)
  Sender: FDA-Public Use
  Company Number: None

PATIENT
  Age: 27 Year
  Sex: Male
  Weight: 90 kg

DRUGS (2)
  1. DIPRIVAN [Suspect]
     Indication: REDUCTION OF INCREASED INTRACRANIAL PRESSURE
     Dosage: 100-350 MG/HR  CONTINUOUS  IV DRIP
     Route: 041
     Dates: start: 20050727, end: 20050913
  2. DIPRIVAN [Suspect]
     Indication: SEDATION
     Dosage: 100-350 MG/HR  CONTINUOUS  IV DRIP
     Route: 041
     Dates: start: 20050727, end: 20050913

REACTIONS (3)
  - PROPOFOL INFUSION SYNDROME [None]
  - RENAL FAILURE ACUTE [None]
  - RHABDOMYOLYSIS [None]
